FAERS Safety Report 25193708 (Version 1)
Quarter: 2025Q2

REPORT INFORMATION
  Report Type: Report from Study
  Country: US (occurrence: US)
  Receive Date: 20250414
  Receipt Date: 20250414
  Transmission Date: 20250716
  Serious: Yes (Hospitalization)
  Sender: ABBVIE
  Company Number: US-ABBVIE-6106907

PATIENT
  Age: 66 Year
  Sex: Male

DRUGS (4)
  1. RINVOQ [Suspect]
     Active Substance: UPADACITINIB
     Indication: Dermatitis atopic
     Dosage: STRENGTH: 15MG
     Route: 048
     Dates: start: 20240813
  2. RINVOQ [Suspect]
     Active Substance: UPADACITINIB
     Indication: Dermatitis atopic
     Dosage: STRENGTH: 15MG
     Route: 048
     Dates: start: 20241204, end: 20250113
  3. RINVOQ [Suspect]
     Active Substance: UPADACITINIB
     Indication: Dermatitis atopic
     Dosage: STRENGTH: 15MG
     Route: 048
     Dates: start: 20250114
  4. RINVOQ [Suspect]
     Active Substance: UPADACITINIB
     Indication: Dermatitis atopic
     Dosage: STRENGTH: 15MG
     Route: 048
     Dates: start: 202501

REACTIONS (13)
  - Oesophageal carcinoma [Unknown]
  - Abdominal pain upper [Recovered/Resolved]
  - Skin exfoliation [Unknown]
  - Candida infection [Recovered/Resolved]
  - Eczema [Recovered/Resolved]
  - Rash [Recovered/Resolved]
  - Paraesthesia [Recovered/Resolved]
  - Adverse food reaction [Unknown]
  - Lip swelling [Recovered/Resolved]
  - Constipation [Unknown]
  - Product use issue [Unknown]
  - Urticaria [Unknown]
  - Eczema [Not Recovered/Not Resolved]

NARRATIVE: CASE EVENT DATE: 20250301
